FAERS Safety Report 8359399-6 (Version None)
Quarter: 2012Q2

REPORT INFORMATION
  Report Type: 
  Country: None (occurrence: None)
  Receive Date: 20120514
  Receipt Date: 20120514
  Transmission Date: 20120825
  Serious: Yes (Other)
  Sender: FDA-Public Use
  Company Number: None

PATIENT
  Age: 67 Year
  Sex: Male
  Weight: 94.8018 kg

DRUGS (2)
  1. NIASPAN [Suspect]
     Indication: PROPHYLAXIS
     Dosage: 500 MG TWICE A DAY PO
     Route: 048
     Dates: start: 20000101, end: 20120511
  2. NIASPAN [Suspect]
     Indication: HYPERLIPIDAEMIA
     Dosage: 500 MG TWICE A DAY PO
     Route: 048
     Dates: start: 20000101, end: 20120511

REACTIONS (1)
  - THROMBOCYTOPENIA [None]
